FAERS Safety Report 4314389-5 (Version None)
Quarter: 2004Q1

REPORT INFORMATION
  Report Type: 
  Country: None (occurrence: None)
  Receive Date: 20040309
  Receipt Date: 20040102
  Transmission Date: 20041129
  Serious: Yes (Hospitalization)
  Sender: FDA-Public Use
  Company Number: US-GLAXOSMITHKLINE-A0491968A

PATIENT
  Age: 62 Year
  Sex: Female
  Weight: 68.2 kg

DRUGS (6)
  1. AVANDIA [Suspect]
     Indication: DIABETES MELLITUS
     Dosage: 4MG PER DAY
     Route: 048
     Dates: start: 19990915, end: 20000425
  2. GLUCOPHAGE [Concomitant]
     Dosage: 400MG PER DAY
  3. PRANDIN [Concomitant]
     Dosage: 4MG THREE TIMES PER DAY
  4. HERBAL SUPPLEMENTS [Concomitant]
  5. CORGARD [Concomitant]
     Dosage: 20MG PER DAY
  6. ZESTRIL [Concomitant]

REACTIONS (14)
  - ACUTE PULMONARY OEDEMA [None]
  - ACUTE RESPIRATORY FAILURE [None]
  - AORTIC VALVE SCLEROSIS [None]
  - ARTERIAL STENOSIS [None]
  - CARDIAC FAILURE CONGESTIVE [None]
  - CORONARY ARTERY DISEASE [None]
  - CORONARY ARTERY STENOSIS [None]
  - DILATATION ATRIAL [None]
  - DYSPNOEA [None]
  - HYPERTENSIVE CRISIS [None]
  - MALIGNANT HYPERTENSION [None]
  - PULMONARY OEDEMA [None]
  - RESPIRATORY ARREST [None]
  - VENTRICULAR HYPERTROPHY [None]
